FAERS Safety Report 11746213 (Version 1)
Quarter: 2015Q4

REPORT INFORMATION
  Report Type: Spontaneous
  Country: US (occurrence: US)
  Receive Date: 20151117
  Receipt Date: 20151117
  Transmission Date: 20160304
  Serious: No
  Sender: FDA-Public Use
  Company Number: US-LPDUSPRD-20150759

PATIENT
  Age: 34 Year
  Sex: Female

DRUGS (5)
  1. INJECTAFER [Suspect]
     Active Substance: FERRIC CARBOXYMALTOSE
     Dosage: 750MG/250ML NS OVER 30 MIN
     Route: 042
     Dates: start: 20150708, end: 20150708
  2. FAMOTIDINE. [Concomitant]
     Active Substance: FAMOTIDINE
     Dosage: 30 MG, TWICE A DAY
     Route: 065
  3. PROPRANOLOL [Concomitant]
     Active Substance: PROPRANOLOL\PROPRANOLOL HYDROCHLORIDE
     Dosage: 10 MG DAILY
     Route: 065
  4. REMICADE [Concomitant]
     Active Substance: INFLIXIMAB
     Dosage: 10MG/KG, EVERY 8 WEEKS
     Route: 065
     Dates: start: 201405
  5. SYNTHROID [Concomitant]
     Active Substance: LEVOTHYROXINE SODIUM
     Dosage: 25MCG DAILY
     Route: 065

REACTIONS (3)
  - Pyrexia [Recovered/Resolved]
  - Headache [Recovered/Resolved]
  - Chills [Recovered/Resolved]

NARRATIVE: CASE EVENT DATE: 20150709
